FAERS Safety Report 5455555-5 (Version None)
Quarter: 2007Q3

REPORT INFORMATION
  Report Type: 
  Country: None (occurrence: None)
  Receive Date: 20070914
  Receipt Date: 20070906
  Transmission Date: 20080115
  Serious: Yes (Hospitalization, Other)
  Sender: FDA-Public Use
  Company Number: 2007AP000969

PATIENT
  Age: 61 Year
  Sex: Male

DRUGS (2)
  1. METFORMIN HCL [Suspect]
     Indication: TYPE 2 DIABETES MELLITUS
     Dosage: 1000 MG; BID
  2. FOSINOPRIL SODIUM [Concomitant]

REACTIONS (11)
  - BRADYCARDIA [None]
  - CARDIAC ARREST [None]
  - CONFUSIONAL STATE [None]
  - DEHYDRATION [None]
  - DIARRHOEA [None]
  - HAEMODIALYSIS [None]
  - LACTIC ACIDOSIS [None]
  - LETHARGY [None]
  - ORAL INTAKE REDUCED [None]
  - RENAL FAILURE ACUTE [None]
  - RESPIRATORY DISTRESS [None]
